FAERS Safety Report 10026181 (Version 2)
Quarter: 2014Q1

REPORT INFORMATION
  Report Type: Spontaneous
  Country: US (occurrence: US)
  Receive Date: 20140320
  Receipt Date: 20140320
  Transmission Date: 20141002
  Serious: No
  Sender: FDA-Public Use
  Company Number: US-ALLERGAN-1317737US

PATIENT
  Sex: Male

DRUGS (2)
  1. LUMIGAN 0.01% [Suspect]
     Indication: NORMAL TENSION GLAUCOMA
     Dosage: 1 GTT, QHS
     Route: 047
     Dates: start: 2011
  2. TIMOLOL MALEATE [Concomitant]
     Indication: GLAUCOMA
     Dosage: 1 GTT, QAM
     Route: 047

REACTIONS (1)
  - Therapeutic response decreased [Unknown]
